FAERS Safety Report 4852517-3 (Version None)
Quarter: 2005Q4

REPORT INFORMATION
  Report Type: 
  Country: None (occurrence: None)
  Receive Date: 20051213
  Receipt Date: 20051201
  Transmission Date: 20060501
  Serious: Yes (Hospitalization)
  Sender: FDA-Public Use
  Company Number: JP-AVENTIS-200513600JP

PATIENT
  Age: 49 Year
  Sex: Female
  Weight: 41 kg

DRUGS (4)
  1. TAXOTERE [Suspect]
     Indication: BREAST CANCER RECURRENT
     Route: 041
     Dates: start: 20051019
  2. ZANTAC [Concomitant]
     Route: 041
     Dates: start: 20050614
  3. DECADRON [Concomitant]
     Route: 041
     Dates: start: 20050614
  4. KYTRIL [Concomitant]
     Route: 041
     Dates: start: 20050614

REACTIONS (6)
  - ASCITES [None]
  - GLOSSITIS [None]
  - METASTASES TO BONE [None]
  - METASTASES TO LIVER [None]
  - ORAL INTAKE REDUCED [None]
  - STOMATITIS [None]
